FAERS Safety Report 4357948-6 (Version None)
Quarter: 2004Q2

REPORT INFORMATION
  Report Type: 
  Country: None (occurrence: None)
  Receive Date: 20040513
  Receipt Date: 20040513
  Transmission Date: 20050107
  Serious: Yes (Death)
  Sender: FDA-Public Use
  Company Number: None

PATIENT
  Age: 88 Year
  Sex: Female
  Weight: 71 kg

DRUGS (3)
  1. ETODOLAC [Suspect]
     Dosage: 400 MG BID PRN ORAL
     Route: 048
     Dates: start: 20031008, end: 20040220
  2. ASPIRIN [Concomitant]
  3. NSAID [Concomitant]

REACTIONS (2)
  - GASTROINTESTINAL HAEMORRHAGE [None]
  - PEPTIC ULCER [None]
